FAERS Safety Report 7717633-7 (Version None)
Quarter: 2011Q3

REPORT INFORMATION
  Report Type: 
  Country: None (occurrence: None)
  Receive Date: 20110830
  Receipt Date: 20110830
  Transmission Date: 20111222
  Serious: Yes (Life-Threatening, Hospitalization)
  Sender: FDA-Public Use
  Company Number: None

PATIENT
  Age: 55 Year
  Sex: Female
  Weight: 98.6 kg

DRUGS (2)
  1. ZOMETA [Suspect]
     Indication: PROPHYLAXIS
     Dosage: 4 MG
     Route: 042
     Dates: start: 20110207, end: 20110808
  2. ZOMETA [Suspect]
     Indication: BONE LOSS
     Dosage: 4 MG
     Route: 042
     Dates: start: 20110207, end: 20110808

REACTIONS (3)
  - NO REACTION ON PREVIOUS EXPOSURE TO DRUG [None]
  - ANAPHYLACTIC REACTION [None]
  - RESPIRATORY ARREST [None]
